FAERS Safety Report 4510738-3 (Version None)
Quarter: 2004Q4

REPORT INFORMATION
  Report Type: 
  Country: None (occurrence: None)
  Receive Date: 20041025
  Receipt Date: 20040409
  Transmission Date: 20050328
  Serious: Yes (Other)
  Sender: FDA-Public Use
  Company Number: NSADSS2002036766

PATIENT
  Age: 59 Year
  Sex: Female

DRUGS (9)
  1. REMICADE [Suspect]
     Indication: RHEUMATOID ARTHRITIS
     Dosage: 3 MG/KG, 1 IN 8 WEEK, INTRAVENOUS DRIP
     Route: 041
     Dates: start: 20020417
  2. REMICADE [Suspect]
     Indication: RHEUMATOID ARTHRITIS
     Dosage: 3 MG/KG, 1 IN 8 WEEK, INTRAVENOUS DRIP
     Route: 041
     Dates: start: 20020610
  3. REMICADE [Suspect]
  4. CELEBREX [Concomitant]
  5. MAXIDE (DYAZIDE) [Concomitant]
  6. KCL (POTASSIUMI CHLORIDE) [Concomitant]
  7. LOPRESSOR [Concomitant]
  8. PREDNISONE [Concomitant]
  9. PLAQUENIL [Concomitant]

REACTIONS (2)
  - MENINGITIS ASEPTIC [None]
  - URTICARIA [None]
